FAERS Safety Report 5317544-0 (Version None)
Quarter: 2007Q2

REPORT INFORMATION
  Report Type: 
  Country: None (occurrence: None)
  Receive Date: 20070507
  Receipt Date: 20070503
  Transmission Date: 20071010
  Serious: Yes (Hospitalization)
  Sender: FDA-Public Use
  Company Number: AR-BRISTOL-MYERS SQUIBB COMPANY-13758164

PATIENT
  Age: 40 Year
  Sex: Female

DRUGS (8)
  1. ABATACEPT [Suspect]
     Indication: RHEUMATOID ARTHRITIS
     Route: 042
     Dates: start: 20040422
  2. METHOTREXATE SODIUM [Suspect]
     Route: 048
     Dates: start: 20011214
  3. PARACETAMOL [Concomitant]
     Dates: start: 20050128
  4. PREDNISONE TAB [Concomitant]
     Dates: start: 20051006
  5. RANITIDINE [Concomitant]
     Dates: start: 20020614
  6. DICLOFENAC [Concomitant]
     Dates: start: 20021018
  7. FOLIC ACID [Concomitant]
     Dates: start: 20011214
  8. MODURETIC 5-50 [Concomitant]

REACTIONS (2)
  - BACTERAEMIA [None]
  - ESCHERICHIA URINARY TRACT INFECTION [None]
